FAERS Safety Report 5107628-4 (Version None)
Quarter: 2006Q3

REPORT INFORMATION
  Report Type: 
  Country: None (occurrence: None)
  Receive Date: 20060914
  Receipt Date: 20060901
  Transmission Date: 20061208
  Serious: Yes (Life-Threatening, Hospitalization)
  Sender: FDA-Public Use
  Company Number: 2006-04803

PATIENT
  Age: 38 Year
  Sex: Female

DRUGS (3)
  1. PROPRANOLOL [Suspect]
     Indication: SUPRAVENTRICULAR TACHYCARDIA
     Dosage: 1.5 MG BOLUS X 1, INTRAVENOUS
     Route: 042
     Dates: start: 20060101, end: 20060101
  2. AMIODARONE (AMIODARONE) [Concomitant]
  3. ADENOSINE [Concomitant]

REACTIONS (1)
  - CARDIAC ARREST [None]
